FAERS Safety Report 12937613 (Version 1)
Quarter: 2016Q4

REPORT INFORMATION
  Report Type: Spontaneous
  Country: US (occurrence: US)
  Receive Date: 20161114
  Receipt Date: 20161114
  Transmission Date: 20170207
  Serious: No
  Sender: FDA-Public Use
  Company Number: US-BAYER-2016-218019

PATIENT
  Age: 5 Year
  Sex: Female

DRUGS (3)
  1. CHILDREN CLARITIN ALLERGY [Suspect]
     Active Substance: LORATADINE
     Indication: COUGH
     Dosage: 1 DF, QD AS NEEDED
     Route: 048
     Dates: start: 20161110
  2. CHILDREN CLARITIN ALLERGY [Suspect]
     Active Substance: LORATADINE
     Indication: SNEEZING
     Dosage: 8 DF, ONCE (1 AT 5:00 AND THEN 7 DF MORE)
     Route: 048
     Dates: start: 20161112, end: 20161112
  3. CHILDREN CLARITIN ALLERGY [Suspect]
     Active Substance: LORATADINE
     Indication: NASAL CONGESTION

REACTIONS (1)
  - Accidental exposure to product by child [Unknown]

NARRATIVE: CASE EVENT DATE: 20161112
